FAERS Safety Report 5021451-0 (Version None)
Quarter: 2006Q2

REPORT INFORMATION
  Report Type: 
  Country: None (occurrence: None)
  Receive Date: 20060605
  Receipt Date: 20060519
  Transmission Date: 20061013
  Serious: Yes (Hospitalization)
  Sender: FDA-Public Use
  Company Number: 225380

PATIENT
  Age: 77 Year
  Sex: 0

DRUGS (4)
  1. RITUXAN [Suspect]
  2. VINCRISTINE [Concomitant]
  3. CYTOXAN [Concomitant]
  4. PRE-MEDICATIONS [Concomitant]

REACTIONS (3)
  - CARDIAC DISORDER [None]
  - DEVICE BREAKAGE [None]
  - MALAISE [None]
